FAERS Safety Report 11213957 (Version 1)
Quarter: 2015Q2

REPORT INFORMATION
  Report Type: Spontaneous
  Country: RO (occurrence: RO)
  Receive Date: 20150623
  Receipt Date: 20150623
  Transmission Date: 20150821
  Serious: Yes (Other)
  Sender: FDA-Public Use
  Company Number: ALCN2015RO003914

PATIENT
  Age: 72 Year
  Sex: Female

DRUGS (1)
  1. IZBA [Suspect]
     Active Substance: TRAVOPROST
     Indication: OCULAR HYPERTENSION
     Dosage: 1 GTT, QD
     Route: 047

REACTIONS (5)
  - Rash papular [Recovered/Resolved]
  - Asphyxia [Recovered/Resolved]
  - Agitation [Recovered/Resolved]
  - Restlessness [Recovered/Resolved]
  - Chest pain [Recovered/Resolved]
